FAERS Safety Report 7988152-8 (Version None)
Quarter: 2011Q4

REPORT INFORMATION
  Report Type: 
  Country: None (occurrence: None)
  Receive Date: 20111216
  Receipt Date: 20110607
  Transmission Date: 20120403
  Serious: No
  Sender: FDA-Public Use
  Company Number: US-BRISTOL-MYERS SQUIBB COMPANY-15809841

PATIENT
  Age: 47 Year
  Sex: Male

DRUGS (4)
  1. KEPPRA [Concomitant]
  2. ABILIFY [Suspect]
  3. KLONOPIN [Concomitant]
  4. LITHIUM CARBONATE [Concomitant]

REACTIONS (1)
  - MEMORY IMPAIRMENT [None]
